FAERS Safety Report 25260180 (Version 1)
Quarter: 2025Q2

REPORT INFORMATION
  Report Type: Spontaneous
  Country: US (occurrence: US)
  Receive Date: 20250501
  Receipt Date: 20250501
  Transmission Date: 20250717
  Serious: Yes (Death, Life-Threatening, Other)
  Sender: BRACCO
  Company Number: US-BRACCO-2025US02690

PATIENT

DRUGS (3)
  1. LUMASON [Suspect]
     Active Substance: SULFUR HEXAFLUORIDE
     Indication: Echocardiogram
     Route: 042
  2. LUMASON [Suspect]
     Active Substance: SULFUR HEXAFLUORIDE
     Indication: Echocardiogram
     Route: 042
  3. LUMASON [Suspect]
     Active Substance: SULFUR HEXAFLUORIDE
     Indication: Echocardiogram
     Route: 042

REACTIONS (3)
  - Cardiac arrest [Fatal]
  - Blindness [Fatal]
  - Throat irritation [Fatal]
